FAERS Safety Report 7564254-5 (Version None)
Quarter: 2011Q2

REPORT INFORMATION
  Report Type: 
  Country: None (occurrence: None)
  Receive Date: 20110622
  Receipt Date: 20110608
  Transmission Date: 20111010
  Serious: Yes (Other)
  Sender: FDA-Public Use
  Company Number: PHHY2011BR53998

PATIENT
  Sex: Male

DRUGS (13)
  1. DIOVAN [Suspect]
     Indication: HYPERTENSION
     Dosage: 1 DF A DAY
     Route: 048
     Dates: start: 19970101
  2. GINKGO BILOBA [Concomitant]
     Indication: MEMORY IMPAIRMENT
     Dosage: 2 DF A DAY
     Route: 048
  3. XALATAN [Concomitant]
     Indication: GLAUCOMA
     Dosage: ONCE AT NIGHT
  4. METFORMIN HCL [Concomitant]
     Indication: DIABETES MELLITUS
     Dosage: 2 DF (850 MG) A DAY
     Route: 048
  5. METFORMIN HCL [Concomitant]
     Dosage: 3 DF (500 MG) A DAY
     Route: 048
  6. DIOSMIN W/HESPERIDIN [Concomitant]
     Indication: CARDIOVASCULAR DISORDER
     Dosage: 2 DF, 500 MG
     Route: 048
  7. HYDROCHLOROTHIAZIDE [Concomitant]
     Indication: DIABETES MELLITUS
     Dosage: 1 DF A DAY
     Route: 048
     Dates: start: 20060101
  8. METOPROLOL SUCCINATE [Concomitant]
     Indication: CARDIOVASCULAR DISORDER
     Dosage: 1 DF A DAY
     Route: 048
     Dates: start: 20080101
  9. ATORVASTATIN [Concomitant]
     Indication: CARDIOVASCULAR DISORDER
     Dosage: 1 DF A DAY
     Route: 048
     Dates: start: 20080101
  10. ASPIRIN [Concomitant]
     Indication: ANTICOAGULANT THERAPY
     Dosage: 1 TABLET A DAY
     Route: 048
     Dates: start: 20060101
  11. ALLOPURINOL [Concomitant]
     Dosage: 1 DF A DAY
  12. NIMODIPINE [Concomitant]
     Indication: CARDIOVASCULAR DISORDER
     Dosage: 1 DF, Q12H
     Route: 048
     Dates: start: 20080101
  13. NOVOLIN M [Concomitant]
     Indication: DIABETES MELLITUS
     Dosage: 29 IU A DAY (24 UNITS IN THE MORNING AND 5 UNITS AT NIGHT)

REACTIONS (6)
  - CATARACT [None]
  - INFARCTION [None]
  - BLOOD CREATININE INCREASED [None]
  - ANAEMIA [None]
  - RENAL DISORDER [None]
  - GLAUCOMA [None]
